FAERS Safety Report 5270653-7 (Version None)
Quarter: 2007Q1

REPORT INFORMATION
  Report Type: 
  Country: None (occurrence: None)
  Receive Date: 20070321
  Receipt Date: 20070313
  Transmission Date: 20070707
  Serious: No
  Sender: FDA-Public Use
  Company Number: US-ELI_LILLY_AND_COMPANY-US200703002721

PATIENT
  Age: 14 Year
  Sex: Male
  Weight: 58.956 kg

DRUGS (3)
  1. ZYPREXA [Suspect]
     Indication: MILD MENTAL RETARDATION
     Dosage: 2.5 MG, 3/D
  2. CLONIDINE [Concomitant]
  3. DEPAKOTE [Concomitant]

REACTIONS (2)
  - BLOOD GLUCOSE INCREASED [None]
  - PLATELET DISORDER [None]
